FAERS Safety Report 19752376 (Version 1)
Quarter: 2021Q3

REPORT INFORMATION
  Report Type: Report from Study
  Country: US (occurrence: US)
  Receive Date: 20210826
  Receipt Date: 20210826
  Transmission Date: 20211014
  Serious: No
  Sender: FDA-Public Use
  Company Number: NVSC2021US190028

PATIENT
  Age: 5 Year
  Sex: Male
  Weight: 15.87 kg

DRUGS (2)
  1. TRACLEER [Concomitant]
     Active Substance: BOSENTAN
     Indication: PRODUCT USED FOR UNKNOWN INDICATION
     Dosage: UNK
     Route: 065
  2. TREPROSTINIL. [Suspect]
     Active Substance: TREPROSTINIL
     Indication: PULMONARY ARTERIAL HYPERTENSION
     Dosage: 59.9 NG/KG/MIN
     Route: 058
     Dates: start: 20210624

REACTIONS (1)
  - Administration site odour [Unknown]

NARRATIVE: CASE EVENT DATE: 20210816
